FAERS Safety Report 11203957 (Version 5)
Quarter: 2015Q4

REPORT INFORMATION
  Report Type: Report from Study
  Country: CO (occurrence: CO)
  Receive Date: 20150619
  Receipt Date: 20151113
  Transmission Date: 20160304
  Serious: Yes (Hospitalization)
  Sender: FDA-Public Use
  Company Number: PHHY2015CO065876

PATIENT
  Sex: Male

DRUGS (5)
  1. TASIGNA [Suspect]
     Active Substance: NILOTINIB
     Indication: CHRONIC MYELOID LEUKAEMIA
     Dosage: UNK
     Route: 065
     Dates: start: 201304
  2. TASIGNA [Suspect]
     Active Substance: NILOTINIB
     Dosage: 200 MG, TID
     Route: 065
     Dates: start: 20150603
  3. TASIGNA [Suspect]
     Active Substance: NILOTINIB
     Dosage: 150 MG, BID
     Route: 048
     Dates: start: 20141028
  4. TASIGNA [Suspect]
     Active Substance: NILOTINIB
     Dosage: 150 MG, UNK
     Route: 065
  5. TASIGNA [Suspect]
     Active Substance: NILOTINIB
     Dosage: 200 MG, UNK
     Route: 065

REACTIONS (9)
  - Feeling cold [Recovering/Resolving]
  - Incorrect drug administration duration [Unknown]
  - Pyrexia [Recovering/Resolving]
  - Malaise [Unknown]
  - Haematemesis [Recovering/Resolving]
  - Dizziness [Not Recovered/Not Resolved]
  - Dengue fever [Recovering/Resolving]
  - Headache [Recovering/Resolving]
  - Asthenia [Recovering/Resolving]
